FAERS Safety Report 14148684 (Version 1)
Quarter: 2017Q4

REPORT INFORMATION
  Report Type: Spontaneous
  Country: US (occurrence: US)
  Receive Date: 20171031
  Receipt Date: 20171031
  Transmission Date: 20180321
  Serious: No
  Sender: FDA-Public Use
  Company Number: None

PATIENT
  Age: 63 Year
  Sex: Male

DRUGS (1)
  1. ERIVEDGE [Suspect]
     Active Substance: VISMODEGIB
     Indication: BASAL CELL CARCINOMA
     Route: 048
     Dates: start: 20170902, end: 20171019

REACTIONS (5)
  - Muscle spasms [None]
  - Dysgeusia [None]
  - Pain [None]
  - Alopecia [None]
  - Middle insomnia [None]

NARRATIVE: CASE EVENT DATE: 20170929
